FAERS Safety Report 22891451 (Version 2)
Quarter: 2024Q2

REPORT INFORMATION
  Report Type: Spontaneous
  Country: US (occurrence: US)
  Receive Date: 20230901
  Receipt Date: 20240514
  Transmission Date: 20240715
  Serious: No
  Sender: FDA-Public Use
  Company Number: US-SA-SAC20230829000419

PATIENT
  Age: 5 Year
  Sex: Male

DRUGS (1)
  1. DUPIXENT [Suspect]
     Active Substance: DUPILUMAB
     Indication: Dermatitis atopic
     Dosage: 200 MG, Q4W
     Route: 058
     Dates: start: 20230504

REACTIONS (4)
  - Abdominal pain upper [Unknown]
  - Cough [Unknown]
  - Abdominal discomfort [Unknown]
  - Gastritis [Unknown]

NARRATIVE: CASE EVENT DATE: 20230504
